FAERS Safety Report 23082185 (Version 2)
Quarter: 2023Q4

REPORT INFORMATION
  Report Type: Report from Study
  Country: US (occurrence: US)
  Receive Date: 20231019
  Receipt Date: 20231229
  Transmission Date: 20240109
  Serious: Yes (Other)
  Sender: FDA-Public Use
  Company Number: US-ABBVIE-5456015

PATIENT
  Sex: Male

DRUGS (4)
  1. VENCLEXTA [Suspect]
     Active Substance: VENETOCLAX
     Indication: Chronic lymphocytic leukaemia
     Dosage: FORM STRENGTH WAS 10 MILLIGRAM.?WEEK ONE.?WITH FOOD.
     Route: 048
  2. VENCLEXTA [Suspect]
     Active Substance: VENETOCLAX
     Indication: Chronic lymphocytic leukaemia
     Dosage: FORM STRENGTH WAS 50 MILLIGRAM.?WEEK TWO.
     Route: 048
  3. VENCLEXTA [Suspect]
     Active Substance: VENETOCLAX
     Indication: Chronic lymphocytic leukaemia
     Dosage: FORM STRENGTH WAS 100 MILLIGRAM.?WEEK THREE.
     Route: 048
  4. VENCLEXTA [Suspect]
     Active Substance: VENETOCLAX
     Indication: Chronic lymphocytic leukaemia
     Dosage: FORM STRENGTH WAS 100 MILLIGRAM.?WEEK FOUR.?THEN AS DIRECTED THEREAFTER.
     Route: 048

REACTIONS (3)
  - Lymphadenopathy [Recovering/Resolving]
  - Diarrhoea [Recovering/Resolving]
  - Gout [Not Recovered/Not Resolved]
